FAERS Safety Report 20079942 (Version 1)
Quarter: 2021Q4

REPORT INFORMATION
  Report Type: Report from Study
  Country: FR (occurrence: FR)
  Receive Date: 20211117
  Receipt Date: 20211117
  Transmission Date: 20220303
  Serious: Yes (Hospitalization)
  Sender: FDA-Public Use
  Company Number: FR-SERVIER-S21012828

PATIENT

DRUGS (8)
  1. PEGASPARGASE [Suspect]
     Active Substance: PEGASPARGASE
     Indication: Acute lymphocytic leukaemia
     Dosage: 2900 IU ON D6
     Route: 042
     Dates: start: 20210829, end: 20210829
  2. TN UNSPECIFIED [Concomitant]
     Indication: Acute lymphocytic leukaemia
     Dosage: 4600 MG ON D1, D2
     Route: 042
     Dates: start: 20210824, end: 20210825
  3. TN UNSPECIFIED [Concomitant]
     Dosage: 30 MG ON D5
     Route: 037
     Dates: start: 20210828, end: 20210828
  4. TN UNSPECIFIED [Concomitant]
     Indication: Acute lymphocytic leukaemia
     Dosage: 173 MG, ON D3, D4, D5
     Route: 042
     Dates: start: 20210826, end: 20210828
  5. CYANOCOBALAMIN\PYRIDOXAMINE HYDROCHLORIDE\THIAMINE HYDROCHLORIDE [Concomitant]
     Active Substance: CYANOCOBALAMIN\PYRIDOXAMINE HYDROCHLORIDE\THIAMINE HYDROCHLORIDE
     Indication: Acute lymphocytic leukaemia
     Dosage: 9.2 MG ON D3, D4
     Route: 042
     Dates: start: 20210826, end: 20210827
  6. TN UNSPECIFIED [Concomitant]
     Indication: Acute lymphocytic leukaemia
     Dosage: 23 MG ON D1 TO D6
     Route: 048
     Dates: start: 20210824, end: 20210829
  7. TN UNSPECIFIED [Concomitant]
     Indication: Acute lymphocytic leukaemia
     Dosage: 15 MG ON D5
     Route: 037
     Dates: start: 20210828, end: 20210828
  8. TN UNSPECIFIED [Concomitant]
     Indication: Acute lymphocytic leukaemia
     Dosage: 15 MG ON D5
     Route: 037
     Dates: start: 20210828, end: 20210828

REACTIONS (1)
  - Febrile bone marrow aplasia [Recovering/Resolving]

NARRATIVE: CASE EVENT DATE: 20210906
